FAERS Safety Report 7027278-2 (Version None)
Quarter: 2010Q4

REPORT INFORMATION
  Report Type: 
  Country: None (occurrence: None)
  Receive Date: 20101001
  Receipt Date: 20101001
  Transmission Date: 20110411
  Serious: No
  Sender: FDA-Public Use
  Company Number: None

PATIENT
  Sex: Female
  Weight: 75.2971 kg

DRUGS (1)
  1. INTRON A [Suspect]
     Indication: MALIGNANT MELANOMA
     Dosage: 18MU (0.35ML) 3 TIMES PER WEEK SUBQ 057
     Route: 058
     Dates: start: 20100806, end: 20100921

REACTIONS (1)
  - RETINAL EXUDATES [None]
